FAERS Safety Report 24396526 (Version 2)
Quarter: 2024Q4

REPORT INFORMATION
  Report Type: Spontaneous
  Country: CZ (occurrence: CZ)
  Receive Date: 20241004
  Receipt Date: 20241021
  Transmission Date: 20250115
  Serious: Yes (Life-Threatening, Hospitalization, Other)
  Sender: JUBILANT
  Company Number: None

PATIENT
  Age: 49 Year
  Sex: Male
  Weight: 95 kg

DRUGS (6)
  1. PAROXETINE [Suspect]
     Active Substance: PAROXETINE
     Indication: Agoraphobia
     Dosage: 60 MG, ONCE PER DAY, HAD BEEN TREATED WITH PAROXETINE 60 MG/DAY FOR MORE THAN 6 YEARS
     Route: 048
  2. PAROXETINE [Suspect]
     Active Substance: PAROXETINE
     Indication: Panic disorder
  3. PAROXETINE HYDROCHLORIDE [Suspect]
     Active Substance: PAROXETINE HYDROCHLORIDE
     Indication: Suicide attempt
     Dosage: 1 G, TOTAL, SUICIDE ATTEMPT CONSUMING AROUND 50 20 MG TABLETS OF PAROXETINE (APO-PAROX), I.E., 1 G O
     Route: 048
  4. METOPROLOL [Concomitant]
     Active Substance: METOPROLOL
     Indication: Hypertension
     Dosage: UNK, INTERMITTENTLY TAKING
  5. CLONAZEPAM [Concomitant]
     Active Substance: CLONAZEPAM
     Indication: Product used for unknown indication
     Dosage: 6 MG, ONCE PER DAY
  6. ALPRAZOLAM [Concomitant]
     Active Substance: ALPRAZOLAM
     Indication: Product used for unknown indication
     Dosage: 2 MG, ONCE PER DAY

REACTIONS (7)
  - Sinus tachycardia [Unknown]
  - Intentional overdose [Recovered/Resolved]
  - Cerebral venous sinus thrombosis [Unknown]
  - Toxicity to various agents [Recovered/Resolved]
  - Urinary retention [Recovered/Resolved]
  - Enzyme activity decreased [Unknown]
  - Delirium [Recovered/Resolved]

NARRATIVE: CASE EVENT DATE: 20210201
